FAERS Safety Report 24285663 (Version 1)
Quarter: 2024Q3

REPORT INFORMATION
  Report Type: Report from Study
  Country: US (occurrence: US)
  Receive Date: 20240905
  Receipt Date: 20240905
  Transmission Date: 20241016
  Serious: Yes (Other)
  Sender: SANOFI AVENTIS
  Company Number: US-SA-SAC20231018000542

PATIENT
  Age: 69 Year
  Sex: Female

DRUGS (1)
  1. DUPILUMAB [Suspect]
     Active Substance: DUPILUMAB
     Indication: Dermatitis atopic
     Dosage: 300 MG, QOW
     Route: 058
     Dates: start: 20190521

REACTIONS (5)
  - Dementia [Unknown]
  - Dysgraphia [Unknown]
  - Pruritus [Unknown]
  - Rash [Recovered/Resolved]
  - Therapeutic response shortened [Recovered/Resolved]
